FAERS Safety Report 6148577-2 (Version None)
Quarter: 2009Q2

REPORT INFORMATION
  Report Type: 
  Country: None (occurrence: None)
  Receive Date: 20090406
  Receipt Date: 20090406
  Transmission Date: 20091009
  Serious: No
  Sender: FDA-Public Use
  Company Number: None

PATIENT
  Age: 44 Year
  Sex: Female
  Weight: 65.7716 kg

DRUGS (1)
  1. AZITHROMYCIN [Suspect]
     Indication: SINUSITIS
     Dosage: 250 QD PO
     Route: 048
     Dates: start: 20090330, end: 20090403

REACTIONS (4)
  - COUGH [None]
  - FATIGUE [None]
  - HEADACHE [None]
  - PRODUCT QUALITY ISSUE [None]
